FAERS Safety Report 19737952 (Version 2)
Quarter: 2021Q3

REPORT INFORMATION
  Report Type: Spontaneous
  Country: TR (occurrence: TR)
  Receive Date: 20210823
  Receipt Date: 20210825
  Transmission Date: 20211014
  Serious: Yes (Death, Hospitalization)
  Sender: FDA-Public Use
  Company Number: TR-CELGENEUS-TUR-20210804663

PATIENT
  Age: 73 Year
  Sex: Male
  Weight: 50 kg

DRUGS (47)
  1. VENETOCLAX. [Suspect]
     Active Substance: VENETOCLAX
     Dosage: 400 MILLIGRAM
     Route: 048
     Dates: start: 20210805, end: 20210811
  2. SODIUM BICARBONATE. [Concomitant]
     Active Substance: SODIUM BICARBONATE
     Indication: ANTIFUNGAL PROPHYLAXIS
     Route: 048
     Dates: start: 20210505, end: 20210509
  3. PARTEMOL [Concomitant]
     Dosage: 10 MILLIGRAM
     Route: 041
     Dates: start: 20210526, end: 20210609
  4. PARTEMOL [Concomitant]
     Route: 041
     Dates: start: 20210809, end: 20210809
  5. TAZERACIN [Concomitant]
     Indication: PNEUMONIA
     Route: 041
     Dates: start: 20210526, end: 20210608
  6. TAMPROST [Concomitant]
     Active Substance: TAMSULOSIN HYDROCHLORIDE
     Indication: BENIGN PROSTATIC HYPERPLASIA
     Dosage: .4 MILLIGRAM
     Route: 048
     Dates: start: 202012
  7. PANTO [Concomitant]
     Indication: PROPHYLAXIS
     Dosage: 40 MILLIGRAM
     Route: 048
     Dates: start: 201201
  8. PANTPAS [Concomitant]
     Active Substance: PANTOPRAZOLE SODIUM
     Indication: PROPHYLAXIS
     Dosage: 40 MILLIGRAM
     Route: 041
     Dates: start: 20210505, end: 20210505
  9. PARTEMOL [Concomitant]
     Route: 041
     Dates: start: 20210806, end: 20210806
  10. FRAVEN [Concomitant]
     Indication: NEUTROPENIA
     Dosage: 30 MIU
     Route: 058
     Dates: start: 20210526, end: 20210609
  11. LEUCOSTIM [Concomitant]
     Active Substance: FILGRASTIM
     Indication: NEUTROPENIA
     Dosage: 30 MIU
     Route: 058
     Dates: start: 20210609, end: 20210614
  12. DEKORT [Concomitant]
     Active Substance: DEXAMETHASONE
     Indication: PROPHYLAXIS
     Dosage: 8 MILLIGRAM
     Route: 048
     Dates: start: 20210805
  13. LEXSAN [Concomitant]
     Indication: PNEUMONIA
     Route: 041
     Dates: start: 20210526, end: 20210608
  14. BELOC ZOK [Concomitant]
     Active Substance: METOPROLOL SUCCINATE
     Indication: CORONARY ARTERY DISEASE
     Dosage: 50 MILLIGRAM
     Route: 048
     Dates: start: 201201
  15. ARVELES [Concomitant]
     Active Substance: DEXKETOPROFEN
     Indication: PAIN
     Route: 048
     Dates: start: 2013
  16. AVIL [Concomitant]
     Active Substance: PHENIRAMINE
     Indication: PROPHYLAXIS OF NAUSEA AND VOMITING
     Dosage: 45.5 MILLIGRAM
     Route: 041
     Dates: start: 20210504, end: 20210509
  17. PANTPAS [Concomitant]
     Active Substance: PANTOPRAZOLE SODIUM
     Dosage: 40 MILLIGRAM
     Route: 041
     Dates: start: 20210525, end: 20210609
  18. PARTEMOL [Concomitant]
     Indication: PAIN
     Dosage: 10 MILLIGRAM
     Route: 041
     Dates: start: 20210507, end: 20210508
  19. EUTHYROX [Concomitant]
     Active Substance: LEVOTHYROXINE SODIUM
     Indication: HYPOTHYROIDISM
     Dosage: 50 MILLIGRAM
     Route: 048
     Dates: start: 1993
  20. LOCALEN POMAD [Concomitant]
     Indication: HAEMORRHOIDS
     Route: 048
     Dates: start: 20210809
  21. AZACITIDINE. [Suspect]
     Active Substance: AZACITIDINE
     Indication: MYELODYSPLASTIC SYNDROME
     Route: 058
     Dates: start: 20210503, end: 20210509
  22. EXELON [Concomitant]
     Active Substance: RIVASTIGMINE TARTRATE
     Indication: DEMENTIA
     Dosage: 4.5 MILLIGRAM
     Route: 048
     Dates: start: 2013
  23. TOVIAZ [Concomitant]
     Active Substance: FESOTERODINE FUMARATE
     Indication: BENIGN PROSTATIC HYPERPLASIA
     Dosage: 4 MILLIGRAM
     Route: 048
     Dates: start: 202012
  24. AVIL [Concomitant]
     Active Substance: PHENIRAMINE
     Dosage: 45.5 MILLIGRAM
     Route: 048
     Dates: start: 20210505
  25. OROHEKS PLUS [Concomitant]
     Indication: PROPHYLAXIS
     Route: 048
     Dates: start: 20210505, end: 20210509
  26. SODIUM BICARBONATE. [Concomitant]
     Active Substance: SODIUM BICARBONATE
     Route: 048
     Dates: start: 20210727
  27. OROHEX [Concomitant]
     Indication: ANTIFUNGAL PROPHYLAXIS
     Dosage: 30 MILLILITER
     Route: 048
     Dates: start: 20210526, end: 20210527
  28. OROHEX [Concomitant]
     Route: 048
     Dates: start: 20210728
  29. LOCAFEN CREAM [Concomitant]
     Indication: HAEMORRHOIDS
     Dosage: 60 GRAM
     Route: 054
     Dates: start: 20210607
  30. EXELON PATCH [Concomitant]
     Active Substance: RIVASTIGMINE
     Indication: PAIN
     Dosage: 18 MILLIGRAM
     Route: 061
     Dates: start: 20210727
  31. GRANITRON [Concomitant]
     Indication: NAUSEA
     Dosage: 3 MILLIGRAM
     Route: 041
     Dates: start: 20210503, end: 20210503
  32. KYTRIL [Concomitant]
     Active Substance: GRANISETRON HYDROCHLORIDE
     Indication: PROPHYLAXIS OF NAUSEA AND VOMITING
     Dosage: 3 MILLIGRAM
     Route: 041
     Dates: start: 20210504, end: 20210509
  33. NEUPOGEN [Concomitant]
     Active Substance: FILGRASTIM
     Indication: NEUTROPENIA
     Dosage: 30 MIU
     Route: 058
     Dates: start: 20210806
  34. LEVOFLOXACIN. [Concomitant]
     Active Substance: LEVOFLOXACIN
     Indication: ANTI-INFECTIVE THERAPY
     Dosage: 500 MILLIGRAM
     Route: 048
     Dates: start: 20210805
  35. NOOTROPIL [Concomitant]
     Active Substance: PIRACETAM
     Indication: DEMENTIA
     Dosage: 800 MILLIGRAM
     Route: 048
     Dates: start: 2013
  36. URSACTIVE [Concomitant]
     Active Substance: URSODIOL
     Indication: CHOLELITHIASIS
     Dosage: 500 MILLIGRAM
     Route: 048
     Dates: start: 20210517
  37. OROHEX [Concomitant]
     Route: 048
     Dates: start: 20210529, end: 20210609
  38. ASIST [Concomitant]
     Indication: ANTIFUNGAL PROPHYLAXIS
     Dosage: 900 MILLIGRAM
     Route: 041
     Dates: start: 20210528, end: 20210609
  39. AZACITIDINE. [Suspect]
     Active Substance: AZACITIDINE
     Route: 058
     Dates: start: 20210805, end: 20210811
  40. VENETOCLAX. [Suspect]
     Active Substance: VENETOCLAX
     Indication: MYELODYSPLASTIC SYNDROME
     Dosage: 400 MILLIGRAM
     Route: 048
     Dates: start: 20210503, end: 20210516
  41. ECOPIRIN [Concomitant]
     Active Substance: ASPIRIN
     Indication: CORONARY ARTERY DISEASE
     Dosage: 150 MILLIGRAM
     Route: 048
     Dates: start: 201201, end: 20210526
  42. GRANITRON [Concomitant]
     Route: 041
     Dates: start: 20210805, end: 20210807
  43. SODIUM BICARBONATE. [Concomitant]
     Active Substance: SODIUM BICARBONATE
     Dosage: 50 MILLILITER
     Route: 048
     Dates: start: 20210526, end: 20210609
  44. OROHEX [Concomitant]
     Indication: DENTAL DISORDER PROPHYLAXIS
     Route: 048
     Dates: start: 20210528, end: 20210528
  45. SEROQUEL 30 [Concomitant]
     Indication: DEMENTIA
     Dosage: 25 MILLIGRAM
     Route: 048
     Dates: start: 20210730
  46. DUROGESIC [Concomitant]
     Active Substance: FENTANYL
     Indication: PAIN
     Dosage: 4.2 MILLIGRAM
     Route: 065
     Dates: start: 20210623
  47. CONTRAMAL [Concomitant]
     Active Substance: TRAMADOL HYDROCHLORIDE
     Indication: PAIN
     Dosage: 20 MILLILITER
     Route: 048
     Dates: start: 20210623

REACTIONS (3)
  - Supraventricular tachycardia [Not Recovered/Not Resolved]
  - General physical health deterioration [Not Recovered/Not Resolved]
  - Pneumonia [Fatal]

NARRATIVE: CASE EVENT DATE: 20210810
